FAERS Safety Report 13736058 (Version 2)
Quarter: 2017Q3

REPORT INFORMATION
  Report Type: Report from Study
  Country: US (occurrence: BR)
  Receive Date: 20170710
  Receipt Date: 20170922
  Transmission Date: 20171127
  Serious: Yes (Death)
  Sender: FDA-Public Use
  Company Number: US-SUNOVION-2017SUN003000

PATIENT
  Sex: Female

DRUGS (1)
  1. INDACATEROL [Suspect]
     Active Substance: INDACATEROL
     Indication: BRONCHIECTASIS
     Route: 055

REACTIONS (3)
  - Bone marrow transplant rejection [Fatal]
  - Pneumonia viral [Fatal]
  - Product use in unapproved indication [Unknown]
